FAERS Safety Report 6865656-2 (Version None)
Quarter: 2010Q3

REPORT INFORMATION
  Report Type: 
  Country: None (occurrence: None)
  Receive Date: 20100721
  Receipt Date: 20080429
  Transmission Date: 20110219
  Serious: No
  Sender: FDA-Public Use
  Company Number: US-PFIZER INC-2008038192

PATIENT
  Sex: Female
  Weight: 59.09 kg

DRUGS (6)
  1. CHANTIX [Suspect]
     Indication: SMOKING CESSATION THERAPY
     Dates: start: 20080427
  2. ALCOHOL [Suspect]
  3. ADDERALL 10 [Concomitant]
  4. ST. JOHN'S WORT [Concomitant]
  5. MACROBID [Concomitant]
     Indication: URINARY TRACT INFECTION
  6. PRILOSEC [Concomitant]
     Indication: GASTRITIS

REACTIONS (2)
  - NAUSEA [None]
  - VOMITING [None]
